FAERS Safety Report 25690535 (Version 2)
Quarter: 2025Q3

REPORT INFORMATION
  Report Type: Spontaneous
  Country: JP (occurrence: JP)
  Receive Date: 20250818
  Receipt Date: 20250904
  Transmission Date: 20251021
  Serious: Yes (Hospitalization, Other)
  Sender: MERCK SHARP & DOHME LLC
  Company Number: JP-009507513-2318778

PATIENT
  Age: 9 Decade
  Sex: Female

DRUGS (1)
  1. KEYTRUDA [Suspect]
     Active Substance: PEMBROLIZUMAB
     Route: 041
     Dates: start: 202407, end: 202508

REACTIONS (2)
  - Infective spondylitis [Not Recovered/Not Resolved]
  - Bacterial pyelonephritis [Not Recovered/Not Resolved]

NARRATIVE: CASE EVENT DATE: 20250801
